FAERS Safety Report 13074529 (Version 1)
Quarter: 2016Q4

REPORT INFORMATION
  Report Type: Report from Study
  Country: US (occurrence: US)
  Receive Date: 20161230
  Receipt Date: 20161230
  Transmission Date: 20170207
  Serious: Yes (Death, Other)
  Sender: FDA-Public Use
  Company Number: US-ROCHE-1873065

PATIENT
  Age: 75 Year
  Sex: Female
  Weight: 88.53 kg

DRUGS (12)
  1. FUROSEMIDE. [Concomitant]
     Active Substance: FUROSEMIDE
     Indication: CARDIAC FAILURE CONGESTIVE
     Dosage: NO
     Route: 048
  2. GLIPIZIDE. [Concomitant]
     Active Substance: GLIPIZIDE
     Indication: DIABETES MELLITUS
     Dosage: NO
     Route: 048
  3. LEVOTHYROXINE. [Concomitant]
     Active Substance: LEVOTHYROXINE
     Indication: HYPOTHYROIDISM
     Dosage: NO
     Route: 065
  4. SINGULAIR [Concomitant]
     Active Substance: MONTELUKAST SODIUM
     Dosage: NO
     Route: 048
  5. DILTIAZEM. [Concomitant]
     Active Substance: DILTIAZEM
     Indication: ARRHYTHMIA
     Dosage: NO
     Route: 048
  6. LEVALBUTEROL. [Concomitant]
     Active Substance: LEVALBUTEROL
     Dosage: NO
     Route: 065
  7. LISINOPRIL. [Concomitant]
     Active Substance: LISINOPRIL
     Indication: BLOOD CHOLESTEROL
     Dosage: NO
     Route: 048
  8. SIMVASTATIN. [Concomitant]
     Active Substance: SIMVASTATIN
     Indication: DYSPNOEA
     Dosage: NO
     Route: 065
  9. AMIODARONE [Concomitant]
     Active Substance: AMIODARONE
     Indication: ARRHYTHMIA
     Dosage: NO
     Route: 048
  10. ASPIRIN. [Concomitant]
     Active Substance: ASPIRIN
     Dosage: NO
     Route: 048
  11. ESBRIET [Suspect]
     Active Substance: PIRFENIDONE
     Indication: IDIOPATHIC PULMONARY FIBROSIS
     Route: 048
     Dates: start: 20160125
  12. HYDRAL [Concomitant]
     Indication: BLOOD PRESSURE MEASUREMENT
     Dosage: NO
     Route: 048

REACTIONS (11)
  - Nausea [Unknown]
  - Malaise [Unknown]
  - Anaemia [Unknown]
  - Respiratory failure [Fatal]
  - Hypothyroidism [Unknown]
  - Dyspnoea [Unknown]
  - Cardiac failure congestive [Unknown]
  - Diabetes mellitus [Unknown]
  - Pneumonia [Unknown]
  - Bradycardia [Unknown]
  - Arrhythmia [Unknown]

NARRATIVE: CASE EVENT DATE: 20161208
